FAERS Safety Report 16697975 (Version 4)
Quarter: 2019Q4

REPORT INFORMATION
  Report Type: Report from Study
  Country: US (occurrence: US)
  Receive Date: 20190813
  Receipt Date: 20191004
  Transmission Date: 20200122
  Serious: Yes (Other)
  Sender: FDA-Public Use
  Company Number: US-PFIZER INC-2019340381

PATIENT
  Age: 56 Year
  Sex: Male
  Weight: 102 kg

DRUGS (2)
  1. XELJANZ [Suspect]
     Active Substance: TOFACITINIB CITRATE
     Indication: RHEUMATOID ARTHRITIS
     Dosage: UNK
  2. XELJANZ [Suspect]
     Active Substance: TOFACITINIB CITRATE
     Indication: ARTHRITIS BACTERIAL

REACTIONS (8)
  - Respiratory tract infection [Recovered/Resolved]
  - Device related infection [Recovered/Resolved]
  - Malignant melanoma [Recovered/Resolved]
  - Immunosuppression [Unknown]
  - Sinusitis [Recovered/Resolved]
  - Arthritis bacterial [Unknown]
  - Basosquamous carcinoma of skin [Recovered/Resolved]
  - Tendon rupture [Not Recovered/Not Resolved]

NARRATIVE: CASE EVENT DATE: 2012
